FAERS Safety Report 5800447-2 (Version None)
Quarter: 2008Q3

REPORT INFORMATION
  Report Type: 
  Country: None (occurrence: None)
  Receive Date: 20080703
  Receipt Date: 20080618
  Transmission Date: 20090109
  Serious: Yes (Life-Threatening, Hospitalization)
  Sender: FDA-Public Use
  Company Number: ES-GENENTECH-259598

PATIENT
  Sex: Male
  Weight: 66 kg

DRUGS (3)
  1. RANIBIZUMAB [Suspect]
     Indication: MACULAR DEGENERATION
     Dosage: 0.3 MG, 1/MONTH
     Route: 031
     Dates: start: 20060922
  2. EMCONCOR [Concomitant]
     Indication: DRUG USE FOR UNKNOWN INDICATION
  3. ANTIHYPERTENSIVE MEDICATION NOS [Concomitant]
     Indication: HYPERTENSION

REACTIONS (1)
  - MYOCARDIAL INFARCTION [None]
